FAERS Safety Report 7127681-6 (Version None)
Quarter: 2010Q4

REPORT INFORMATION
  Report Type: 
  Country: None (occurrence: None)
  Receive Date: 20101130
  Receipt Date: 20101115
  Transmission Date: 20110411
  Serious: No
  Sender: FDA-Public Use
  Company Number: US-BIOGENIDEC-2010BI018979

PATIENT
  Sex: Female

DRUGS (3)
  1. TYSABRI [Suspect]
     Indication: MULTIPLE SCLEROSIS
     Route: 042
     Dates: start: 20100115
  2. ANTIBIOTIC [Concomitant]
     Indication: URINARY TRACT INFECTION
  3. AMPYRA [Concomitant]
     Indication: PRODUCT USED FOR UNKNOWN INDICATION
     Dates: start: 20100901, end: 20101001

REACTIONS (12)
  - ACNE [None]
  - FALL [None]
  - GAIT DISTURBANCE [None]
  - HEAD INJURY [None]
  - JOINT LOCK [None]
  - MULTIPLE SCLEROSIS [None]
  - NERVOUS SYSTEM DISORDER [None]
  - PROCEDURAL SITE REACTION [None]
  - SKIN HAEMORRHAGE [None]
  - SKIN LACERATION [None]
  - TEMPERATURE INTOLERANCE [None]
  - VITAMIN D DECREASED [None]
